FAERS Safety Report 8055875-4 (Version None)
Quarter: 2012Q1

REPORT INFORMATION
  Report Type: 
  Country: None (occurrence: None)
  Receive Date: 20120119
  Receipt Date: 20120119
  Transmission Date: 20120608
  Serious: Yes (Hospitalization, Other)
  Sender: FDA-Public Use
  Company Number: None

PATIENT
  Age: 31 Year
  Sex: Male
  Weight: 78.925 kg

DRUGS (1)
  1. CIPROFLOXACIN [Suspect]
     Indication: PROSTATITIS
     Dosage: 500 MG
     Route: 048
     Dates: start: 20111123, end: 20111128

REACTIONS (5)
  - CARPAL TUNNEL SYNDROME [None]
  - BURNING SENSATION [None]
  - ARTHRALGIA [None]
  - PARAESTHESIA [None]
  - MUSCLE TWITCHING [None]
